FAERS Safety Report 11899354 (Version 1)
Quarter: 2016Q1

REPORT INFORMATION
  Report Type: Spontaneous
  Country: US (occurrence: US)
  Receive Date: 20160108
  Receipt Date: 20160108
  Transmission Date: 20160526
  Serious: No
  Sender: FDA-Public Use
  Company Number: US-SA-2015SA207492

PATIENT
  Age: 61 Year
  Sex: Male

DRUGS (2)
  1. AFREZZA [Suspect]
     Active Substance: INSULIN HUMAN
     Indication: TYPE 1 DIABETES MELLITUS
     Route: 065
     Dates: start: 20150203
  2. LANTUS [Concomitant]
     Active Substance: INSULIN GLARGINE

REACTIONS (2)
  - Inappropriate schedule of drug administration [Unknown]
  - Hypoglycaemia [Unknown]
